FAERS Safety Report 8851004 (Version 1)
Quarter: 2012Q4

REPORT INFORMATION
  Report Type: Report from Study
  Country: CA (occurrence: CA)
  Receive Date: 20121019
  Receipt Date: 20121019
  Transmission Date: 20130627
  Serious: Yes (Other)
  Sender: FDA-Public Use
  Company Number: CA-UCBSA-068472

PATIENT
  Age: 27 Year
  Sex: Male
  Weight: 88 kg

DRUGS (3)
  1. CIMZIA [Suspect]
     Indication: CROHN^S DISEASE
     Dosage: PREVIOUS STUDY : C87085
     Route: 058
  2. CIMZIA [Suspect]
     Indication: CROHN^S DISEASE
     Dosage: NO. OF DOSES RECEIVED : 47
     Route: 058
     Dates: start: 20090122, end: 20120607
  3. AMILORIDE [Concomitant]
     Indication: HYPERTENSION
     Route: 048
     Dates: start: 20090324

REACTIONS (1)
  - Clostridium difficile infection [Recovered/Resolved]
